FAERS Safety Report 24560068 (Version 1)
Quarter: 2024Q4

REPORT INFORMATION
  Report Type: Spontaneous
  Country: GB (occurrence: GB)
  Receive Date: 20241029
  Receipt Date: 20241029
  Transmission Date: 20250115
  Serious: Yes (Other)
  Sender: BAXTER
  Company Number: GB-MHRA-EMIS-1653-b9023fa8-0c5b-483c-86a5-d12d0025844f

PATIENT
  Age: 68 Year
  Sex: Female
  Weight: 59 kg

DRUGS (3)
  1. METRONIDAZOLE [Suspect]
     Active Substance: METRONIDAZOLE
     Dosage: UNK
     Route: 065
  2. ERYTHROMYCIN ETHYLSUCCINATE [Concomitant]
     Active Substance: ERYTHROMYCIN ETHYLSUCCINATE
     Dosage: 140 ML, DURATION: 29DAYS, DOSAGE TEXT:  (ONE 5 ML SPOONFUL TO BE TAKEN FOUR TIMES A DAY)
     Route: 065
     Dates: start: 20240808, end: 20240906
  3. CLARITHROMYCIN [Concomitant]
     Active Substance: CLARITHROMYCIN
     Dosage: 70 ML, DOSAGE TEXT: 250 MG/5 ML TWICE DAILY FOR 7 DAYS
     Route: 065
     Dates: start: 20240923

REACTIONS (1)
  - Deafness [Unknown]
